FAERS Safety Report 5250167-0 (Version None)
Quarter: 2007Q1

REPORT INFORMATION
  Report Type: 
  Country: None (occurrence: None)
  Receive Date: 20070228
  Receipt Date: 20060220
  Transmission Date: 20070707
  Serious: No
  Sender: FDA-Public Use
  Company Number: US-GLAXOSMITHKLINE-A0594144A

PATIENT
  Age: 9 Year
  Sex: Male
  Weight: 30 kg

DRUGS (2)
  1. LAMICTAL [Suspect]
     Indication: EPILEPSY
     Dosage: 150MG TWICE PER DAY
     Route: 048
  2. DEPAKOTE ER [Suspect]
     Dosage: 250MG AT NIGHT

REACTIONS (4)
  - COORDINATION ABNORMAL [None]
  - DRUG INEFFECTIVE [None]
  - DRUG TOXICITY [None]
  - VOMITING [None]
